FAERS Safety Report 5736998-9 (Version None)
Quarter: 2008Q2

REPORT INFORMATION
  Report Type: 
  Country: None (occurrence: None)
  Receive Date: 20080514
  Receipt Date: 20080509
  Transmission Date: 20081010
  Serious: Yes (Death)
  Sender: FDA-Public Use
  Company Number: AR-BRISTOL-MYERS SQUIBB COMPANY-14186597

PATIENT

DRUGS (23)
  1. CEFEPIME [Suspect]
     Indication: PNEUMONIA
     Dosage: 1 DOSAGE FORM=1 TO 2 GRAM TWICE DAILY OR THREE TIMES A DAY(MODERATE OR SEVEREINFECTIONRESPECTIVELY)
     Route: 042
  2. CEFEPIME [Suspect]
     Indication: ABDOMINAL INFECTION
     Dosage: 1 DOSAGE FORM=1 TO 2 GRAM TWICE DAILY OR THREE TIMES A DAY(MODERATE OR SEVEREINFECTIONRESPECTIVELY)
     Route: 042
  3. CEFEPIME [Suspect]
     Indication: URINARY TRACT INFECTION
     Dosage: 1 DOSAGE FORM=1 TO 2 GRAM TWICE DAILY OR THREE TIMES A DAY(MODERATE OR SEVEREINFECTIONRESPECTIVELY)
     Route: 042
  4. CEFEPIME [Suspect]
     Indication: SEPSIS
     Dosage: 1 DOSAGE FORM=1 TO 2 GRAM TWICE DAILY OR THREE TIMES A DAY(MODERATE OR SEVEREINFECTIONRESPECTIVELY)
     Route: 042
  5. AMPICILLIN [Suspect]
     Indication: ABDOMINAL INFECTION
     Dosage: 1 DOSAGE FORM = 2 TO 3 G
     Route: 042
  6. AMPICILLIN [Suspect]
     Indication: URINARY TRACT INFECTION
     Dosage: 1 DOSAGE FORM = 2 TO 3 G
     Route: 042
  7. AMPICILLIN [Suspect]
     Indication: SEPSIS
     Dosage: 1 DOSAGE FORM = 2 TO 3 G
     Route: 042
  8. AMPICILLIN [Suspect]
     Indication: PNEUMONIA
     Dosage: 1 DOSAGE FORM = 2 TO 3 G
     Route: 042
  9. GENTAMICIN [Suspect]
     Indication: PNEUMONIA
     Dosage: 80MG TWICE DAILY OR THRICE DAILY
     Route: 042
  10. GENTAMICIN [Suspect]
     Indication: ABDOMINAL INFECTION
     Dosage: 80MG TWICE DAILY OR THRICE DAILY
     Route: 042
  11. GENTAMICIN [Suspect]
     Indication: URINARY TRACT INFECTION
     Dosage: 80MG TWICE DAILY OR THRICE DAILY
     Route: 042
  12. GENTAMICIN [Suspect]
     Indication: SEPSIS
     Dosage: 80MG TWICE DAILY OR THRICE DAILY
     Route: 042
  13. CEPHALOTHIN [Suspect]
     Indication: SEPSIS
     Dosage: 1 DOSAGE FORM = 2 TO 3 GRAM
     Route: 042
  14. CEPHALOTHIN [Suspect]
     Indication: URINARY TRACT INFECTION
     Dosage: 1 DOSAGE FORM = 2 TO 3 GRAM
     Route: 042
  15. CEPHALOTHIN [Suspect]
     Indication: ABDOMINAL INFECTION
     Dosage: 1 DOSAGE FORM = 2 TO 3 GRAM
     Route: 042
  16. CEPHALOTHIN [Suspect]
     Indication: PNEUMONIA
     Dosage: 1 DOSAGE FORM = 2 TO 3 GRAM
     Route: 042
  17. CEFTRIAXONE [Suspect]
     Indication: PNEUMONIA
     Dosage: 1 DOSAGE FORM = 1 TO 2 GRAM
     Route: 042
  18. CEFTRIAXONE [Suspect]
     Indication: URINARY TRACT INFECTION
     Dosage: 1 DOSAGE FORM = 1 TO 2 GRAM
     Route: 042
  19. CEFTRIAXONE [Suspect]
     Indication: ABDOMINAL INFECTION
     Dosage: 1 DOSAGE FORM = 1 TO 2 GRAM
     Route: 042
  20. CEFTRIAXONE [Suspect]
     Indication: SEPSIS
     Dosage: 1 DOSAGE FORM = 1 TO 2 GRAM
     Route: 042
  21. METRONIDAZOLE HCL [Concomitant]
     Indication: ABDOMINAL INFECTION
     Route: 042
  22. METRONIDAZOLE HCL [Concomitant]
     Indication: PNEUMONIA ASPIRATION
     Route: 042
  23. VANCOMYCIN [Concomitant]
     Indication: STAPHYLOCOCCAL INFECTION
     Route: 042

REACTIONS (1)
  - DEATH [None]
